FAERS Safety Report 23132330 (Version 4)
Quarter: 2023Q4

REPORT INFORMATION
  Report Type: Spontaneous
  Country: JP (occurrence: JP)
  Receive Date: 20231101
  Receipt Date: 20231205
  Transmission Date: 20240110
  Serious: Yes (Hospitalization, Other)
  Sender: FDA-Public Use
  Company Number: JP-ORGANON-O2310JPN003682

PATIENT
  Age: 3 Year
  Sex: Female
  Weight: 19 kg

DRUGS (1)
  1. ZETIA [Suspect]
     Active Substance: EZETIMIBE
     Indication: Phytosterolaemia
     Dosage: 5 MILLIGRAM, QD
     Route: 048
     Dates: start: 201905, end: 20231027

REACTIONS (2)
  - Pancreatitis [Recovering/Resolving]
  - Product use issue [Unknown]

NARRATIVE: CASE EVENT DATE: 20190501
